FAERS Safety Report 9280615 (Version 1)
Quarter: 2013Q2

REPORT INFORMATION
  Report Type: Spontaneous
  Country: ES (occurrence: ES)
  Receive Date: 20130509
  Receipt Date: 20130509
  Transmission Date: 20140414
  Serious: Yes (Hospitalization)
  Sender: FDA-Public Use
  Company Number: ES-SANOFI-AVENTIS-2013SA044656

PATIENT
  Age: 78 Year
  Sex: Female
  Weight: 72 kg

DRUGS (12)
  1. ENOXAPARIN SODIUM [Suspect]
     Indication: DEEP VEIN THROMBOSIS
     Route: 058
  2. ENOXAPARIN SODIUM [Suspect]
     Indication: DEEP VEIN THROMBOSIS
     Route: 058
  3. PARACETAMOL [Suspect]
     Indication: ANALGESIC THERAPY
     Route: 042
  4. LEVOBUPIVACAINE [Suspect]
     Indication: ANALGESIC THERAPY
     Dosage: EPIDURAL INFUSION OF LEVOBUPIVACAINE(0.125%)+ FENTANYL(1MICROGRAM/ML) WAS GIVEN AT 10 ML/HR
     Route: 042
  5. LEVOBUPIVACAINE [Suspect]
     Indication: ANALGESIC THERAPY
     Dosage: EPIDURAL INFUSION OF LEVOBUPIVACAINE(0.125%)+ FENTANYL(1MICROGRAM/ML) WAS GIVEN AT 8 ML/HR
     Route: 042
  6. FENTANYL [Suspect]
     Indication: ANALGESIC THERAPY
     Route: 042
  7. FENTANYL [Suspect]
     Indication: ANALGESIC THERAPY
     Route: 042
  8. FAMOTIDINE [Concomitant]
  9. METHIMAZOLE [Concomitant]
  10. LERCANIDIPINE [Concomitant]
  11. DOXAZOSIN [Concomitant]
  12. HYDROCHLOROTHIAZIDE/LOSARTAN [Concomitant]

REACTIONS (3)
  - Haemangioma [Unknown]
  - Spinal epidural haematoma [Unknown]
  - Paraparesis [Recovered/Resolved]
